FAERS Safety Report 7555916-4 (Version None)
Quarter: 2011Q2

REPORT INFORMATION
  Report Type: 
  Country: None (occurrence: None)
  Receive Date: 20110618
  Receipt Date: 20110606
  Transmission Date: 20111010
  Serious: Yes (Hospitalization)
  Sender: FDA-Public Use
  Company Number: US-ELI_LILLY_AND_COMPANY-US201103008850

PATIENT
  Sex: Female

DRUGS (9)
  1. COREG [Concomitant]
     Dosage: 25 MG, UNK
  2. VITAMIN D [Concomitant]
     Dosage: 50000 U, WEEKLY (1/W)
  3. COLCHICINE [Concomitant]
     Dosage: 0.65 MG, UNK
  4. MONTELUKAST SODIUM [Concomitant]
     Dosage: 10 MG, QD
  5. CHOLESTYRAMINE [Concomitant]
     Dosage: UNK, QD
  6. FORTEO [Suspect]
     Indication: OSTEOPOROSIS
     Dosage: 20 UG, QD
  7. FORTEO [Suspect]
     Dosage: 20 UG, QD
  8. LASIX [Concomitant]
     Dosage: 80 MG, QD
  9. OXY [Concomitant]
     Dosage: UNK, OTHER

REACTIONS (1)
  - CHRONIC OBSTRUCTIVE PULMONARY DISEASE [None]
